FAERS Safety Report 11715821 (Version 2)
Quarter: 2015Q4

REPORT INFORMATION
  Report Type: Spontaneous
  Country: NL (occurrence: NL)
  Receive Date: 20151109
  Receipt Date: 20151201
  Transmission Date: 20160304
  Serious: Yes (Hospitalization)
  Sender: FDA-Public Use
  Company Number: NL-PFIZER INC-2015281466

PATIENT
  Age: 85 Year
  Sex: Female
  Weight: 70 kg

DRUGS (13)
  1. SOMAVERT [Suspect]
     Active Substance: PEGVISOMANT
     Indication: ACROMEGALY
     Dosage: 10 MG, ALTERNATE DAY (EVERY OTHER DAY)
     Route: 058
     Dates: start: 20050630
  2. CARBOMER [Concomitant]
     Active Substance: CARBOMER
     Dosage: 2 MG/G, 3-4 DROPS/DAILY IN BOTH EYES
     Route: 047
  3. DEXTRAN 70 W/HYPROMELLOSE [Concomitant]
     Dosage: 1/3 MG/ML, 4 DROPS/DAILY IN BOTH EYES
     Route: 047
  4. SOMAVERT [Suspect]
     Active Substance: PEGVISOMANT
     Dosage: 10 MG, ALTERNATE DAY (EVERY OTHER DAY)
     Route: 058
     Dates: start: 20140310
  5. SOMAVERT [Suspect]
     Active Substance: PEGVISOMANT
     Dosage: 10 MG, ALTERNATE DAY (EVERY OTHER DAY)
     Route: 058
     Dates: start: 20150630
  6. LEVODOPA BENSERAZIDE [Concomitant]
     Active Substance: BENSERAZIDE\LEVODOPA
     Dosage: 2 DF, 3X/DAY (100/25 MG)
     Route: 048
  7. OCTREOTID [Concomitant]
     Dosage: 1 DF, MONTHLY
     Route: 058
  8. OMEPRAZOL [Concomitant]
     Active Substance: OMEPRAZOLE
     Dosage: 20 MG, 2X/DAY
     Route: 048
  9. MACROGOL EN ELEKTROLYTEN [Concomitant]
     Dosage: 1 DF, DAILY
     Route: 048
  10. LISINOPRIL. [Concomitant]
     Active Substance: LISINOPRIL
     Dosage: 5 MG, 1X/DAY
     Route: 048
  11. TRIHEXYPHENIDYL [Concomitant]
     Active Substance: TRIHEXYPHENIDYL
     Dosage: 2 MG, 3X/DAY
     Route: 048
  12. SOMAVERT [Suspect]
     Active Substance: PEGVISOMANT
     Dosage: 10 MG, ALTERNATE DAY (EVERY OTHER DAY)
     Dates: start: 20140610
  13. ACETYLSALICYLIC ACID [Concomitant]
     Active Substance: ASPIRIN
     Dosage: 80 MG, 1X/DAY
     Route: 048

REACTIONS (2)
  - Off label use [Unknown]
  - Hip fracture [Recovering/Resolving]

NARRATIVE: CASE EVENT DATE: 20151022
